FAERS Safety Report 5988257-7 (Version None)
Quarter: 2008Q4

REPORT INFORMATION
  Report Type: 
  Country: None (occurrence: None)
  Receive Date: 20081210
  Receipt Date: 20081208
  Transmission Date: 20090506
  Serious: Yes (Hospitalization)
  Sender: FDA-Public Use
  Company Number: FR-JNJFOC-20081201035

PATIENT
  Sex: Female

DRUGS (7)
  1. DURAGESIC-100 [Suspect]
     Indication: PAIN
     Route: 062
  2. BACTRIM [Suspect]
     Indication: URINARY TRACT INFECTION
     Route: 048
  3. NOROXIN [Suspect]
     Indication: URINARY TRACT INFECTION
     Route: 048
  4. XATRAL LP [Suspect]
     Indication: URINARY RETENTION
     Route: 048
  5. MICROPAKINE [Suspect]
     Indication: EPILEPSY
     Route: 048
  6. DAFALGAN [Suspect]
     Indication: PAIN
     Route: 048
  7. CORDARONE [Suspect]
     Indication: ARRHYTHMIA
     Route: 048

REACTIONS (3)
  - LEUKOPENIA [None]
  - NEUTROPENIA [None]
  - PYREXIA [None]
